FAERS Safety Report 8980422 (Version 1)
Quarter: 2012Q4

REPORT INFORMATION
  Report Type: 
  Country: DE (occurrence: DE)
  Receive Date: 20121221
  Receipt Date: 20121221
  Transmission Date: 20130627
  Serious: Yes (Death, Other)
  Sender: FDA-Public Use
  Company Number: PHHY2012DE117590

PATIENT
  Age: 40 Year
  Sex: Female

DRUGS (5)
  1. AZATHIOPRINE [Suspect]
     Indication: MULTIPLE SCLEROSIS
     Dosage: 100 mg, QD
  2. METHYLPREDNISOLONE [Suspect]
     Indication: MULTIPLE SCLEROSIS
     Dosage: 1 g, QD
  3. METHYLPREDNISOLONE [Suspect]
     Dosage: 100 mg, QD
  4. INTERFERON BETA-1A [Concomitant]
  5. NATALIZUMAB [Concomitant]
     Dosage: 300 mg, QW4
     Dates: start: 200804, end: 200806

REACTIONS (13)
  - Death [Fatal]
  - Central nervous system lymphoma [Unknown]
  - Partial seizures [Unknown]
  - Sensory disturbance [Unknown]
  - Cognitive disorder [Unknown]
  - Central nervous system lesion [Unknown]
  - Fatigue [Unknown]
  - Gait disturbance [Unknown]
  - Ataxia [Unknown]
  - Monoparesis [Unknown]
  - Personality change [Unknown]
  - Pleocytosis [Unknown]
  - B-cell lymphoma [Unknown]
